FAERS Safety Report 5190204-5 (Version None)
Quarter: 2006Q4

REPORT INFORMATION
  Report Type: 
  Country: None (occurrence: None)
  Receive Date: 20061222
  Receipt Date: 20060925
  Transmission Date: 20070319
  Serious: No
  Sender: FDA-Public Use
  Company Number: US-AMGEN-KDL194650

PATIENT
  Sex: Male

DRUGS (5)
  1. ARANESP [Suspect]
     Indication: ANAEMIA OF MALIGNANT DISEASE
  2. TAXOL [Concomitant]
  3. CARBOPLATIN [Concomitant]
  4. PERCOCET [Concomitant]
  5. VITAMIN B6 [Concomitant]

REACTIONS (2)
  - CONDITION AGGRAVATED [None]
  - NEURALGIA [None]
